FAERS Safety Report 9143738 (Version 2)
Quarter: 2013Q1

REPORT INFORMATION
  Report Type: Report from Study
  Country: US (occurrence: US)
  Receive Date: 20130306
  Receipt Date: 20130311
  Transmission Date: 20140127
  Serious: Yes (Hospitalization)
  Sender: FDA-Public Use
  Company Number: US-ROCHE-1173828

PATIENT
  Age: 76 Year
  Sex: Male
  Weight: 60.65 kg

DRUGS (11)
  1. BEVACIZUMAB [Suspect]
     Indication: NON-SMALL CELL LUNG CANCER
     Dosage: DATE OF MOST RECENT DOSE PRIOR TO 1ST EPISODE:30/NOV/2012, MOST RECENT DOSE PRIOR TO 2ND EPISODE:08/
     Route: 042
     Dates: start: 20120817
  2. PEMETREXED [Suspect]
     Indication: NON-SMALL CELL LUNG CANCER
     Dosage: DATE OF LAST DOSE PRIOR TO 1ST EPISODE:30/NOV/2012, MOST RECENT DOSE PRIOR TO 2ND EPISODE:08/FEB/201
     Route: 042
     Dates: start: 20120817
  3. CARBOPLATIN [Suspect]
     Indication: NON-SMALL CELL LUNG CANCER
     Dosage: DATE OF LAST DOSE: 19/OCT/2012
     Route: 042
     Dates: start: 20120817
  4. AMLODIPINE [Concomitant]
     Indication: HYPERTENSION
     Route: 065
     Dates: start: 2011
  5. COZAAR [Concomitant]
     Indication: HYPERTENSION
     Route: 065
     Dates: start: 20120905
  6. HUMALOG [Concomitant]
     Indication: HYPERGLYCAEMIA
     Dosage: SLIDING SCALE
     Route: 065
     Dates: start: 2010
  7. LANTUS [Concomitant]
     Indication: HYPERGLYCAEMIA
     Dosage: 5 U/Q
     Route: 065
     Dates: start: 2010
  8. METOPROLOL TARTRATE [Concomitant]
     Indication: HYPERTENSION
     Route: 065
     Dates: start: 2011
  9. TRAMADOL [Concomitant]
     Indication: CANCER PAIN
     Route: 065
     Dates: start: 2011
  10. SIMVASTATIN [Concomitant]
     Indication: BLOOD CHOLESTEROL INCREASED
     Route: 065
     Dates: start: 2011
  11. DEXAMETHASONE [Concomitant]
     Dosage: 10 MG/IV
     Route: 065
     Dates: start: 20120817

REACTIONS (3)
  - Pneumonia [Recovering/Resolving]
  - Pneumonia [Not Recovered/Not Resolved]
  - Acute respiratory failure [Not Recovered/Not Resolved]
